FAERS Safety Report 9717956 (Version 1)
Quarter: 2013Q4

REPORT INFORMATION
  Report Type: Not Available
  Country: US (occurrence: US)
  Receive Date: 20131125
  Receipt Date: 20131125
  Transmission Date: 20140711
  Serious: No
  Sender: FDA-Public Use
  Company Number: US-VIVUS-2013V1000387

PATIENT
  Age: 68 Year
  Sex: Male
  Weight: 123.94 kg

DRUGS (2)
  1. QSYMIA 7.5MG/46MG [Suspect]
     Indication: WEIGHT DECREASED
     Route: 048
     Dates: start: 20130425, end: 20130505
  2. QSYMIA 3.75MG/23MG [Suspect]
     Indication: WEIGHT DECREASED
     Route: 048
     Dates: start: 20130410, end: 20130424

REACTIONS (3)
  - Dyspnoea [Recovered/Resolved]
  - Localised intraabdominal fluid collection [Recovered/Resolved]
  - Dehydration [Recovered/Resolved]
